FAERS Safety Report 9643673 (Version 1)
Quarter: 2013Q4

REPORT INFORMATION
  Report Type: Spontaneous
  Country: FR (occurrence: FR)
  Receive Date: 20131024
  Receipt Date: 20131024
  Transmission Date: 20140711
  Serious: Yes (Life-Threatening, Hospitalization, Other)
  Sender: FDA-Public Use
  Company Number: PHHY2013FR119075

PATIENT
  Age: 75 Year
  Sex: Female

DRUGS (3)
  1. VOLTAREN [Suspect]
     Indication: PAIN
     Dosage: 50 MG, BID
     Route: 048
     Dates: start: 20130802, end: 20130805
  2. TAREG [Interacting]
     Indication: HYPERTENSION
     Dosage: 80 MG, QD
     Route: 048
     Dates: end: 20130805
  3. EUCREAS [Interacting]
     Indication: DIABETES MELLITUS
     Dosage: UNK UKN, BID
     Route: 048
     Dates: start: 20130724, end: 20130805

REACTIONS (5)
  - Metabolic acidosis [Recovered/Resolved]
  - Renal failure acute [Recovered/Resolved]
  - Hyperkalaemia [Unknown]
  - Renal tubular necrosis [Recovered/Resolved]
  - Drug interaction [Unknown]
